FAERS Safety Report 19846158 (Version 1)
Quarter: 2021Q3

REPORT INFORMATION
  Report Type: Report from Study
  Country: US (occurrence: US)
  Receive Date: 20210917
  Receipt Date: 20210917
  Transmission Date: 20211014
  Serious: Yes (Other)
  Sender: FDA-Public Use
  Company Number: US-SA-2021SA304435

PATIENT
  Age: 69 Year

DRUGS (1)
  1. ALGLUCOSIDASE ALFA [Suspect]
     Active Substance: ALGLUCOSIDASE ALFA
     Indication: GLYCOGEN STORAGE DISEASE TYPE II
     Dosage: 1200 MG, QOW
     Route: 042
     Dates: start: 20100830

REACTIONS (6)
  - Dyspnoea [Unknown]
  - Diaphragm muscle weakness [Unknown]
  - Arthralgia [Unknown]
  - Pain [Unknown]
  - Neck pain [Unknown]
  - Fatigue [Unknown]

NARRATIVE: CASE EVENT DATE: 20210913
